FAERS Safety Report 6856878-5 (Version None)
Quarter: 2010Q3

REPORT INFORMATION
  Report Type: 
  Country: None (occurrence: None)
  Receive Date: 20100719
  Receipt Date: 20091022
  Transmission Date: 20110219
  Serious: Yes (Other)
  Sender: FDA-Public Use
  Company Number: US-BRISTOL-MYERS SQUIBB COMPANY-14828313

PATIENT
  Age: 45 Year
  Sex: Female

DRUGS (3)
  1. ESTRACE [Suspect]
  2. PROGESTERONE [Suspect]
  3. FLOVENT [Concomitant]

REACTIONS (1)
  - BREAST CANCER [None]
